FAERS Safety Report 21439117 (Version 1)
Quarter: 2022Q4

REPORT INFORMATION
  Report Type: Spontaneous
  Country: IT (occurrence: IT)
  Receive Date: 20221011
  Receipt Date: 20221011
  Transmission Date: 20230112
  Serious: Yes (Hospitalization, Other)
  Sender: FDA-Public Use
  Company Number: IT-PFIZER INC-PV202200073082

PATIENT
  Age: 83 Year
  Sex: Female

DRUGS (1)
  1. LEVOFLOXACIN [Suspect]
     Active Substance: LEVOFLOXACIN
     Indication: Skin ulcer
     Dosage: 500 MG, 1X/DAY (IN THE LAST FOR 2 DAYS)

REACTIONS (1)
  - Erythema multiforme [Unknown]
